FAERS Safety Report 7629949-3 (Version None)
Quarter: 2011Q3

REPORT INFORMATION
  Report Type: 
  Country: None (occurrence: None)
  Receive Date: 20110722
  Receipt Date: 20110718
  Transmission Date: 20111222
  Serious: Yes (Other)
  Sender: FDA-Public Use
  Company Number: ES-BRISTOL-MYERS SQUIBB COMPANY-15907744

PATIENT
  Age: 48 Year
  Sex: Female

DRUGS (4)
  1. TRASTUZUMAB [Suspect]
     Dosage: LOADING DOSE:8MG/KG
     Route: 042
  2. CYCLOPHOSPHAMIDE [Suspect]
     Indication: BREAST CANCER
     Dosage: FOUR 21DAY CYCLE
     Route: 042
  3. DOXORUBICIN HCL [Suspect]
     Indication: BREAST CANCER
     Dosage: FOUR 21DAY CYCLE
     Route: 042
  4. DOCETAXEL [Suspect]
     Dosage: FOUR 21DAY CYCLE
     Route: 042

REACTIONS (1)
  - LYMPHOEDEMA [None]
